FAERS Safety Report 9120790 (Version 1)
Quarter: 2013Q1

REPORT INFORMATION
  Report Type: Spontaneous
  Country: US (occurrence: US)
  Receive Date: 20130226
  Receipt Date: 20130226
  Transmission Date: 20140127
  Serious: No
  Sender: FDA-Public Use
  Company Number: US-TARO-2012P1009183

PATIENT
  Age: 15 Month
  Sex: Female
  Weight: 7.94 kg

DRUGS (1)
  1. NYSTATIN [Suspect]
     Route: 061
     Dates: start: 20120306, end: 20120307

REACTIONS (1)
  - Feeding disorder neonatal [Recovered/Resolved]
